FAERS Safety Report 4583235-7 (Version None)
Quarter: 2005Q1

REPORT INFORMATION
  Report Type: 
  Country: None (occurrence: None)
  Receive Date: 20050215
  Receipt Date: 20040806
  Transmission Date: 20050727
  Serious: Yes (Hospitalization, Disabling, Other)
  Sender: FDA-Public Use
  Company Number: US-MERCK-0408USA00558

PATIENT
  Age: 71 Year
  Sex: Female
  Weight: 83 kg

DRUGS (20)
  1. VIOXX [Suspect]
     Route: 048
     Dates: start: 20001001, end: 20010401
  2. VIOXX [Suspect]
     Route: 048
     Dates: start: 20010401, end: 20020701
  3. VIOXX [Suspect]
     Route: 048
     Dates: start: 20020701, end: 20020701
  4. VIOXX [Suspect]
     Route: 048
     Dates: start: 20020701, end: 20020901
  5. PLAVIX [Concomitant]
     Indication: CEREBROVASCULAR ACCIDENT PROPHYLAXIS
     Route: 065
  6. FLOVENT [Concomitant]
     Indication: ASTHMA
     Route: 055
  7. LEVOXYL [Concomitant]
     Indication: HYPOTHYROIDISM
     Route: 065
  8. LEVOXYL [Concomitant]
     Route: 065
     Dates: start: 20040722
  9. TYLENOL W/ CODEINE NO. 3 [Concomitant]
     Indication: OSTEOARTHRITIS
     Route: 065
  10. PREDNISONE [Concomitant]
     Indication: ARTHRALGIA
     Route: 065
     Dates: end: 20010424
  11. ADVAIR DISKUS 100/50 [Concomitant]
     Indication: ASTHMA
     Route: 065
  12. MONOPRIL [Concomitant]
     Route: 065
  13. AZMACORT [Concomitant]
     Route: 065
  14. ASPIRIN [Concomitant]
     Route: 065
  15. NEXIUM [Concomitant]
     Route: 065
  16. VENTOLIN [Concomitant]
     Route: 055
  17. RANITIDINE [Concomitant]
     Route: 065
  18. HYDROXYCHLOROQUINE SULFATE [Concomitant]
     Route: 065
  19. HYDROCHLOROTHIAZIDE [Concomitant]
     Route: 065
  20. COZAAR [Concomitant]
     Route: 065
     Dates: start: 20010111

REACTIONS (37)
  - ACUTE RESPIRATORY FAILURE [None]
  - ANXIETY [None]
  - ARTHRALGIA [None]
  - ARTHRITIS [None]
  - ASTHMA [None]
  - BACK DISORDER [None]
  - BACK PAIN [None]
  - CEREBRAL INFARCTION [None]
  - CHEST WALL PAIN [None]
  - CHOLELITHIASIS [None]
  - CHRONIC OBSTRUCTIVE PULMONARY DISEASE [None]
  - CORONARY ARTERY DISEASE [None]
  - DEPRESSION [None]
  - DIABETES MELLITUS INADEQUATE CONTROL [None]
  - DIZZINESS [None]
  - EMOTIONAL DISTRESS [None]
  - ENANTHEMA [None]
  - EPISTAXIS [None]
  - FACE INJURY [None]
  - GALLBLADDER DISORDER [None]
  - GASTROOESOPHAGEAL REFLUX DISEASE [None]
  - HYPERTENSIVE HEART DISEASE [None]
  - HYPOTHYROIDISM [None]
  - IDIOSYNCRATIC DRUG REACTION [None]
  - INSOMNIA [None]
  - LOBAR PNEUMONIA [None]
  - LUNG DISORDER [None]
  - NAUSEA [None]
  - NERVOUSNESS [None]
  - POST PROCEDURAL NAUSEA [None]
  - PRURITUS [None]
  - RENAL FAILURE CHRONIC [None]
  - SWELLING FACE [None]
  - ULCER [None]
  - UPPER RESPIRATORY TRACT INFECTION [None]
  - URINARY TRACT INFECTION [None]
  - UTERINE DISORDER [None]
